FAERS Safety Report 25403721 (Version 2)
Quarter: 2025Q3

REPORT INFORMATION
  Report Type: Spontaneous
  Country: AU (occurrence: AU)
  Receive Date: 20250605
  Receipt Date: 20250805
  Transmission Date: 20251021
  Serious: Yes (Death, Hospitalization)
  Sender: ALEXION PHARMACEUTICALS
  Company Number: AU-ASTRAZENECA-202506OCE001579AU

PATIENT
  Age: 77 Year
  Sex: Female

DRUGS (1)
  1. DURVALUMAB [Suspect]
     Active Substance: DURVALUMAB
     Indication: Non-small cell lung cancer
     Dates: start: 20241030, end: 20241208

REACTIONS (2)
  - Immune-mediated lung disease [Fatal]
  - Therapy non-responder [Fatal]

NARRATIVE: CASE EVENT DATE: 20250307
